FAERS Safety Report 6630851-4 (Version None)
Quarter: 2010Q1

REPORT INFORMATION
  Report Type: 
  Country: None (occurrence: None)
  Receive Date: 20100311
  Receipt Date: 20100225
  Transmission Date: 20100710
  Serious: Yes (Death, Other)
  Sender: FDA-Public Use
  Company Number: ZA-B.I. PHARMACEUTICALS,INC./RIDGEFIELD-2010-DE-01331GD

PATIENT
  Age: 48 Year
  Sex: Female

DRUGS (5)
  1. NEVIRAPINE [Suspect]
     Indication: HIV INFECTION
     Dosage: 200 MG
  2. NEVIRAPINE [Suspect]
     Dosage: 400 MG
  3. EFAVIRENZ [Suspect]
     Indication: HIV INFECTION
  4. ANTI-HIV AGENTS [Concomitant]
     Indication: HIV INFECTION
  5. ANTI-TUBERCULAR DRUG [Concomitant]
     Indication: TUBERCULOSIS

REACTIONS (2)
  - DEATH [None]
  - HEPATOTOXICITY [None]
